FAERS Safety Report 12900834 (Version 1)
Quarter: 2016Q4

REPORT INFORMATION
  Report Type: Spontaneous
  Country: NL (occurrence: NL)
  Receive Date: 20161101
  Receipt Date: 20161101
  Transmission Date: 20170207
  Serious: Yes (Death, Other)
  Sender: FDA-Public Use
  Company Number: NL-TEVA-708162ROM

PATIENT
  Age: 71 Year
  Sex: Female

DRUGS (1)
  1. MORPHINE PUMP [Suspect]
     Active Substance: MORPHINE
     Indication: PALLIATIVE CARE
     Dosage: 10 TIMES HIGHER DOSE

REACTIONS (4)
  - Dose calculation error [Unknown]
  - Somnolence [Not Recovered/Not Resolved]
  - Incorrect drug administration rate [Unknown]
  - Toxicity to various agents [Fatal]
